FAERS Safety Report 10137713 (Version 1)
Quarter: 2014Q2

REPORT INFORMATION
  Report Type: Spontaneous
  Country: US (occurrence: None)
  Receive Date: 20140428
  Receipt Date: 20140428
  Transmission Date: 20141212
  Serious: Yes (Life-Threatening, Other)
  Sender: FDA-Public Use
  Company Number: None

PATIENT
  Age: 33 Year
  Sex: Male
  Weight: 104 kg

DRUGS (12)
  1. CEFTAROLINE FOSAMIL [Suspect]
     Indication: STAPHYLOCOCCAL BACTERAEMIA
     Route: 042
     Dates: start: 20140323, end: 20140421
  2. DAPTOMYCIN [Concomitant]
  3. CALCIUM ACETATE [Concomitant]
  4. FOLIC ACID [Concomitant]
  5. THIAMINE [Concomitant]
  6. HEPARIN [Concomitant]
  7. NICOTINE [Concomitant]
  8. OMEPRAZOLE [Concomitant]
  9. NYSTATIN [Concomitant]
  10. OXYCODONE [Concomitant]
  11. ROBITUSSIN DM [Concomitant]
  12. FUROSEMIDE [Concomitant]

REACTIONS (3)
  - Acute respiratory failure [None]
  - Febrile neutropenia [None]
  - White blood cell count decreased [None]
